FAERS Safety Report 18081852 (Version 2)
Quarter: 2020Q3

REPORT INFORMATION
  Report Type: Spontaneous
  Country: BR (occurrence: BR)
  Receive Date: 20200728
  Receipt Date: 20200803
  Transmission Date: 20201103
  Serious: Yes (Hospitalization)
  Sender: FDA-Public Use
  Company Number: BR-NOVOPROD-742454

PATIENT
  Sex: Female
  Weight: 66 kg

DRUGS (3)
  1. PURAN [Concomitant]
     Active Substance: LEVOTHYROXINE SODIUM
     Indication: METABOLIC DISORDER
     Dosage: 1 TABLET IN THE MORNING ON AN EMPTY STOMACH
     Route: 065
  2. VICTOZA [Suspect]
     Active Substance: LIRAGLUTIDE
     Indication: METABOLIC DISORDER
     Dosage: UNK
     Route: 065
     Dates: start: 2020
  3. FLUXTAR [Concomitant]
     Indication: ANXIETY
     Dosage: 1 TABLET PER DAY
     Route: 065

REACTIONS (2)
  - Gastrointestinal infection [Recovered/Resolved]
  - Off label use [Unknown]

NARRATIVE: CASE EVENT DATE: 2020
